FAERS Safety Report 17335903 (Version 1)
Quarter: 2020Q1

REPORT INFORMATION
  Report Type: Spontaneous
  Country: JP (occurrence: JP)
  Receive Date: 20200128
  Receipt Date: 20200128
  Transmission Date: 20200409
  Serious: Yes (Hospitalization, Other)
  Sender: FDA-Public Use
  Company Number: JP-FERRINGPH-2020FE00301

PATIENT
  Age: 36 Year
  Sex: Female

DRUGS (3)
  1. ANTIGONADOTROPINS AND SIMILAR AGENTS [Concomitant]
  2. MENOTROPHIN [Suspect]
     Active Substance: MENOTROPINS
     Indication: ASSISTED REPRODUCTIVE TECHNOLOGY
     Route: 065
  3. AROMATASE INHIBITORS [Concomitant]
     Active Substance: UNSPECIFIED INGREDIENT

REACTIONS (3)
  - Ovarian enlargement [Recovering/Resolving]
  - Anaemia [Recovering/Resolving]
  - Ovarian haemorrhage [Recovering/Resolving]
